FAERS Safety Report 4743661-X (Version None)
Quarter: 2005Q3

REPORT INFORMATION
  Report Type: 
  Country: None (occurrence: None)
  Receive Date: 20050812
  Receipt Date: 20050811
  Transmission Date: 20060218
  Serious: Yes (Life-Threatening, Hospitalization)
  Sender: FDA-Public Use
  Company Number: JP-SANOFI-SYNTHELABO-F01200501511

PATIENT
  Age: 56 Year
  Sex: Female
  Weight: 69 kg

DRUGS (6)
  1. OXALIPLATIN [Suspect]
     Indication: COLON CANCER
     Route: 042
     Dates: start: 20050520, end: 20050616
  2. FLUOROURACIL [Suspect]
     Dosage: 1000MG/BODY=625MG/M2 AS CONTINUOUS INFUSION ON DAYS 1 AND 2
     Route: 042
     Dates: start: 20050520, end: 20050521
  3. FLUOROURACIL [Suspect]
     Route: 040
     Dates: start: 20050616, end: 20050616
  4. FLUOROURACIL [Suspect]
     Dosage: 650MG/BODY=406.3MG/M2 IN BOLUS FOLLOWED BY 1000MG/BODY=625MG/M2 AS CONTINUOUS INFUSION ON DAYS 1 + 2
     Route: 041
     Dates: start: 20050616, end: 20050617
  5. CALCIUM LEVOFOLINATE [Suspect]
     Route: 042
     Dates: start: 20050520, end: 20050616
  6. MAXIPIME [Concomitant]
     Indication: INFECTION PROPHYLAXIS
     Dates: start: 20050721, end: 20050728

REACTIONS (1)
  - PULMONARY INFARCTION [None]
